FAERS Safety Report 8872279 (Version 1)
Quarter: 2012Q4

REPORT INFORMATION
  Report Type: 
  Country: CA (occurrence: CA)
  Receive Date: 20121029
  Receipt Date: 20121029
  Transmission Date: 20130627
  Serious: Yes (Hospitalization, Other)
  Sender: FDA-Public Use
  Company Number: PHHO2005CA12833

PATIENT
  Sex: Female

DRUGS (23)
  1. SANDOSTATIN (OCTREOTIDE ACETATE) [Suspect]
     Indication: PANCREATITIS CHRONIC
     Dosage: 100 ug, TID
     Route: 058
     Dates: start: 200503
  2. SANDOSTATIN LAR (PATIENT BASIS) [Suspect]
     Dosage: 20 mg, UNK
     Dates: start: 20050906
  3. ATIVAN [Concomitant]
  4. ACETAMINOPHEN [Concomitant]
  5. CREON [Concomitant]
  6. DOMPERIDONE [Concomitant]
  7. DURAGESIC [Concomitant]
  8. HYDROMORPHONE [Concomitant]
  9. NOVOLIN N [Concomitant]
  10. NOVOLIN R [Concomitant]
  11. PANTOLOC [Concomitant]
  12. PAXIL [Concomitant]
  13. PREMARIN [Concomitant]
  14. REMERON [Concomitant]
  15. SENNOSIDE [Concomitant]
  16. SYNTHROID [Concomitant]
  17. VASOTEC [Concomitant]
  18. ASAPHEN [Concomitant]
  19. IMDUR [Concomitant]
  20. K-DUR [Concomitant]
  21. LASIX [Concomitant]
  22. PLAVIX [Concomitant]
  23. ALTACE [Concomitant]

REACTIONS (11)
  - Arterial occlusive disease [Unknown]
  - Acute pulmonary oedema [Unknown]
  - Heart valve incompetence [Unknown]
  - Hyperglycaemia [Unknown]
  - Asthenia [Unknown]
  - Procedural complication [Unknown]
  - Arterial rupture [Unknown]
  - Vein disorder [Unknown]
  - Oedema [Unknown]
  - Vascular fragility [Unknown]
  - Hypotension [Unknown]
